FAERS Safety Report 8135657-5 (Version None)
Quarter: 2012Q1

REPORT INFORMATION
  Report Type: 
  Country: None (occurrence: None)
  Receive Date: 20120214
  Receipt Date: 20120208
  Transmission Date: 20120608
  Serious: Yes (Other)
  Sender: FDA-Public Use
  Company Number: PHHY2012JP010909

PATIENT

DRUGS (2)
  1. NEORAL [Suspect]
     Indication: PSORIASIS
     Dosage: UNK UKN, UNK
     Route: 048
  2. ADRENAL HORMONE PREPARATIONS [Concomitant]
     Indication: PSORIASIS

REACTIONS (2)
  - LIVER DISORDER [None]
  - HERNIA [None]
